FAERS Safety Report 16109835 (Version 1)
Quarter: 2019Q1

REPORT INFORMATION
  Report Type: Spontaneous
  Country: ZA (occurrence: ZA)
  Receive Date: 20190325
  Receipt Date: 20190325
  Transmission Date: 20190418
  Serious: Yes (Hospitalization, Other)
  Sender: FDA-Public Use
  Company Number: ZA-LUPIN HEALTHCARE (UK) LIMITED-2019-01545

PATIENT
  Sex: Female

DRUGS (8)
  1. FLEXOCAM TABLET [Suspect]
     Active Substance: MELOXICAM
     Indication: INFLAMMATION
     Dosage: 7.5 MILLIGRAM
     Route: 048
     Dates: start: 201812
  2. CINNARIZINE [Suspect]
     Active Substance: CINNARIZINE
     Indication: NAUSEA
     Dosage: 25 MILLIGRAM
     Route: 048
     Dates: start: 201809
  3. BIO ATENOLOL [Suspect]
     Active Substance: ATENOLOL
     Indication: HYPERTENSION
     Dosage: 100 MILLIGRAM
     Route: 048
     Dates: start: 201809
  4. SINOPREN [Suspect]
     Active Substance: LISINOPRIL
     Indication: HYPERTENSION
     Dosage: 20 MILLIGRAM
     Route: 048
     Dates: start: 201809
  5. BIO NIFEDIPINE XL [Suspect]
     Active Substance: NIFEDIPINE
     Indication: HYPERTENSION
     Dosage: 60 MILLIGRAM
     Route: 048
     Dates: start: 201809
  6. METHOTREXATE. [Suspect]
     Active Substance: METHOTREXATE
     Indication: PRODUCT USED FOR UNKNOWN INDICATION
     Dosage: 2.5 MILLIGRAM
     Route: 048
     Dates: start: 201809
  7. ESTROFEM                           /00045401/ [Suspect]
     Active Substance: ESTRADIOL
     Indication: HORMONE REPLACEMENT THERAPY
     Dosage: 1 MILLIGRAM
     Route: 048
     Dates: start: 201810
  8. LANCAP [Suspect]
     Active Substance: LANSOPRAZOLE
     Indication: DYSPEPSIA
     Dosage: 30 MILLIGRAM
     Route: 048
     Dates: start: 201810

REACTIONS (1)
  - Pulmonary embolism [Unknown]
